FAERS Safety Report 5198891-2 (Version None)
Quarter: 2007Q1

REPORT INFORMATION
  Report Type: 
  Country: None (occurrence: None)
  Receive Date: 20070104
  Receipt Date: 20070102
  Transmission Date: 20070707
  Serious: Yes (Hospitalization, Other)
  Sender: FDA-Public Use
  Company Number: PHEH2006US11498

PATIENT
  Age: 69 Year
  Sex: Male
  Weight: 63.492 kg

DRUGS (5)
  1. ZOMETA [Suspect]
     Indication: PROSTATE CANCER METASTATIC
     Dosage: 4MG OVER 15 MIN
     Route: 042
     Dates: start: 20031120, end: 20060927
  2. TRELSTAR [Concomitant]
     Dosage: 3 MON
     Route: 030
     Dates: start: 20050901, end: 20060601
  3. TRELSTAR [Concomitant]
     Dosage: 425 MG Q6MOS
     Route: 030
     Dates: start: 20060101
  4. ELIGARD [Concomitant]
     Dosage: Q 3 MONTH
     Dates: start: 20030801, end: 20041101
  5. ELIGARD [Concomitant]
     Dosage: 6 MONTH
     Dates: start: 20050201, end: 20050901

REACTIONS (8)
  - BONE DISORDER [None]
  - BONE LESION [None]
  - GINGIVAL INFECTION [None]
  - ORAL CAVITY FISTULA [None]
  - OSTEONECROSIS [None]
  - STAPHYLOCOCCAL INFECTION [None]
  - SURGERY [None]
  - TOOTH EXTRACTION [None]
